FAERS Safety Report 7047469-4 (Version None)
Quarter: 2010Q4

REPORT INFORMATION
  Report Type: 
  Country: None (occurrence: None)
  Receive Date: 20101015
  Receipt Date: 20101004
  Transmission Date: 20110411
  Serious: Yes (Other)
  Sender: FDA-Public Use
  Company Number: US-WATSON-2010-13471

PATIENT
  Age: 54 Year
  Sex: Female

DRUGS (3)
  1. HYDROMORPHONE HYDROCHLORIDE (WATSON LABORATORIES) [Suspect]
     Indication: ANALGESIC THERAPY
     Dosage: 1.5 MG/HR, DEMAN 1.5 MG WITH LOCKOUT OF 15 MIN AND BOLUS OF 2 MG/HR PRN
     Route: 042
  2. HYDROMORPHONE HYDROCHLORIDE (WATSON LABORATORIES) [Suspect]
     Dosage: 150 MCG/HR, DEMAN 50 MCG WITH LOCKOUT OF 15 MIN
     Route: 042
  3. FENTANYL CITRATE [Suspect]
     Indication: ANALGESIC THERAPY
     Dosage: 60 MCG/HR
     Route: 042

REACTIONS (2)
  - DELIRIUM [None]
  - SEPSIS [None]
